FAERS Safety Report 9814542 (Version 1)
Quarter: 2014Q1

REPORT INFORMATION
  Report Type: Spontaneous
  Country: US (occurrence: US)
  Receive Date: 20140113
  Receipt Date: 20140113
  Transmission Date: 20141002
  Serious: No
  Sender: FDA-Public Use
  Company Number: US-BIOGENIDEC-2014BI000275

PATIENT
  Age: 54 Year
  Sex: Female
  Weight: 59 kg

DRUGS (5)
  1. TECFIDERA [Suspect]
     Indication: PRODUCT USED FOR UNKNOWN INDICATION
     Route: 048
  2. COMBIPATCH [Concomitant]
  3. ASA LOW STR [Concomitant]
  4. COMPLETE VITAMIN D [Concomitant]
  5. OMEPRAZOLE [Concomitant]

REACTIONS (1)
  - Gastrooesophageal reflux disease [Unknown]
